FAERS Safety Report 5473641-0 (Version None)
Quarter: 2007Q4

REPORT INFORMATION
  Report Type: 
  Country: None (occurrence: None)
  Receive Date: 20071001
  Receipt Date: 20070924
  Transmission Date: 20080405
  Serious: Yes (Other)
  Sender: FDA-Public Use
  Company Number: DE-ROXANE LABORATORIES, INC-2007-BP-21512RO

PATIENT
  Age: 47 Year
  Sex: Male

DRUGS (2)
  1. AZATHIOPRINE [Suspect]
     Indication: CROHN'S DISEASE
     Dates: start: 20050901, end: 20061001
  2. ETHANOL [Suspect]
     Indication: ALCOHOLISM
     Route: 048
     Dates: start: 20060701, end: 20060801

REACTIONS (5)
  - HEPATITIS CHOLESTATIC [None]
  - PANCYTOPENIA [None]
  - PELIOSIS HEPATIS [None]
  - PORTAL HYPERTENSION [None]
  - SMALL INTESTINAL OBSTRUCTION [None]
